FAERS Safety Report 7330788-1 (Version None)
Quarter: 2011Q1

REPORT INFORMATION
  Report Type: 
  Country: None (occurrence: None)
  Receive Date: 20110304
  Receipt Date: 20110228
  Transmission Date: 20110831
  Serious: Yes (Other)
  Sender: FDA-Public Use
  Company Number: US-PFIZER INC-2011043496

PATIENT
  Sex: Male
  Weight: 62.585 kg

DRUGS (2)
  1. NAPROXEN [Concomitant]
     Indication: OSTEOARTHRITIS
     Dosage: UNK
  2. VIAGRA [Suspect]
     Indication: ERECTILE DYSFUNCTION
     Dosage: 100 MG, AS NEEDED
     Route: 048
     Dates: start: 20110226

REACTIONS (2)
  - INCORRECT DOSE ADMINISTERED [None]
  - ERECTION INCREASED [None]
